FAERS Safety Report 8138247-3 (Version None)
Quarter: 2012Q1

REPORT INFORMATION
  Report Type: 
  Country: None (occurrence: None)
  Receive Date: 20120215
  Receipt Date: 20120215
  Transmission Date: 20120608
  Serious: Yes (Other)
  Sender: FDA-Public Use
  Company Number: CZ-ABBOTT-12P-217-0893514-00

PATIENT
  Sex: Male
  Weight: 100 kg

DRUGS (4)
  1. NIMESULID [Concomitant]
     Indication: PSORIATIC ARTHROPATHY
     Dates: start: 20040101
  2. METHOTREXATE [Concomitant]
     Indication: PSORIATIC ARTHROPATHY
     Route: 048
     Dates: start: 20020501, end: 20090501
  3. FOLIC ACID [Concomitant]
     Indication: VITAMIN SUPPLEMENTATION
     Dates: start: 20020501, end: 20090501
  4. HUMIRA [Suspect]
     Indication: PSORIATIC ARTHROPATHY
     Route: 058
     Dates: start: 20061206

REACTIONS (1)
  - PULMONARY SARCOIDOSIS [None]
